FAERS Safety Report 24752059 (Version 1)
Quarter: 2024Q4

REPORT INFORMATION
  Report Type: Spontaneous
  Country: JP (occurrence: JP)
  Receive Date: 20241219
  Receipt Date: 20241219
  Transmission Date: 20250115
  Serious: Yes (Hospitalization, Other)
  Sender: SANOFI AVENTIS
  Company Number: JP-SA-2024SA368703

PATIENT
  Age: 80 Year
  Sex: Female

DRUGS (1)
  1. PLAVIX [Suspect]
     Active Substance: CLOPIDOGREL BISULFATE
     Indication: Product used for unknown indication
     Route: 048

REACTIONS (6)
  - Disability [Unknown]
  - Mental impairment [Unknown]
  - Cerebral haemorrhage [Unknown]
  - Mastication disorder [Unknown]
  - Dysphagia [Unknown]
  - Language disorder [Unknown]
